FAERS Safety Report 10213901 (Version 1)
Quarter: 2014Q2

REPORT INFORMATION
  Report Type: Spontaneous
  Country: CN (occurrence: CN)
  Receive Date: 20140603
  Receipt Date: 20140603
  Transmission Date: 20141212
  Serious: Yes (Other)
  Sender: FDA-Public Use
  Company Number: CN-ASTRAZENECA-2014SE36992

PATIENT
  Age: 88 Year
  Sex: Female

DRUGS (1)
  1. ESOMEPRAZOLE MAGNESIUM [Suspect]
     Indication: GASTROOESOPHAGEAL REFLUX DISEASE
     Dosage: 40 DAILY
     Route: 048
     Dates: start: 20130710, end: 20130717

REACTIONS (3)
  - Haemoglobin decreased [Unknown]
  - Neutropenia [Not Recovered/Not Resolved]
  - C-reactive protein increased [Unknown]
